FAERS Safety Report 4593009-9 (Version None)
Quarter: 2005Q1

REPORT INFORMATION
  Report Type: 
  Country: None (occurrence: None)
  Receive Date: 20050125
  Receipt Date: 20040820
  Transmission Date: 20050727
  Serious: No
  Sender: FDA-Public Use
  Company Number: USA040876127

PATIENT
  Age: 67 Year
  Sex: Female

DRUGS (4)
  1. FORTEO [Suspect]
     Indication: OSTEOPOROSIS
     Dates: start: 20040630
  2. ZESTRIL [Concomitant]
  3. NORVASC [Concomitant]
  4. CALCIUM CARBONATE [Concomitant]

REACTIONS (1)
  - INJECTION SITE HAEMORRHAGE [None]
